FAERS Safety Report 9687573 (Version 2)
Quarter: 2013Q4

REPORT INFORMATION
  Report Type: Report from Study
  Country: CA (occurrence: CA)
  Receive Date: 20131114
  Receipt Date: 20131118
  Transmission Date: 20140711
  Serious: Yes (Other)
  Sender: FDA-Public Use
  Company Number: CA-JNJFOC-20131105125

PATIENT
  Age: 59 Year
  Sex: Female
  Weight: 109 kg

DRUGS (2)
  1. REMICADE [Suspect]
     Indication: PSORIATIC ARTHROPATHY
     Dosage: FOR 52 WEEKS
     Route: 042
     Dates: start: 20130205
  2. REMICADE [Suspect]
     Indication: PSORIATIC ARTHROPATHY
     Dosage: FOR 52 WEEKS
     Route: 042
     Dates: start: 20131111

REACTIONS (1)
  - Spinal column stenosis [Unknown]
